FAERS Safety Report 4725785-6 (Version None)
Quarter: 2005Q3

REPORT INFORMATION
  Report Type: 
  Country: None (occurrence: None)
  Receive Date: 20050722
  Receipt Date: 20050722
  Transmission Date: 20060218
  Serious: Yes (Hospitalization)
  Sender: FDA-Public Use
  Company Number: None

PATIENT
  Age: 84 Year
  Sex: Female

DRUGS (18)
  1. NEURONTIN [Suspect]
     Dosage: 800 MG ORALLY TID
     Route: 048
  2. EFFEXOR XR [Suspect]
     Dosage: 150 MG, ORALLY,QD
     Route: 048
  3. ATIVAN [Suspect]
     Dosage: 0.5 MG, ORALLY, QD
     Route: 048
  4. OSCAL + D [Suspect]
     Dosage: 600 MG, ORALLY, QD
     Route: 048
  5. DITROPAN [Suspect]
     Dosage: 10 MG, ORALLY, QD
     Route: 048
  6. COUMADIN [Suspect]
     Dosage: 5 MG, ORALLY, QD
     Route: 048
  7. DILANTIN [Suspect]
     Dosage: 300 MG, ORALLY, QD
     Route: 048
  8. AMBIEN [Suspect]
     Dosage: 10 MG, ORALLY, QHS
     Route: 048
  9. KADIAN [Suspect]
     Dosage: 20 MG, ORALLY, QD
     Route: 048
  10. ENULOSE [Suspect]
     Dosage: 15 ML , ORALLY, QD
     Route: 048
  11. ROXICODONE [Suspect]
     Dosage: 5 MG, ORALLY, QD
     Route: 048
  12. ZYRTEC [Suspect]
     Dosage: 10 MG , ORALLY, QD
     Route: 048
  13. AUGMENTIN '125' [Suspect]
  14. LORAZEPAM [Concomitant]
  15. ZOLPIDEM [Concomitant]
  16. MORPHINE SULFATE [Concomitant]
  17. OXYCODONE [Concomitant]
  18. CETIRIZINE HCL [Concomitant]

REACTIONS (1)
  - MENTAL STATUS CHANGES [None]
